FAERS Safety Report 10681204 (Version 2)
Quarter: 2015Q1

REPORT INFORMATION
  Report Type: Spontaneous
  Country: US (occurrence: US)
  Receive Date: 20141230
  Receipt Date: 20150108
  Transmission Date: 20150720
  Serious: Yes (Hospitalization, Other)
  Sender: FDA-Public Use
  Company Number: US-MERCK-1412USA011056

PATIENT
  Sex: Male

DRUGS (1)
  1. TEMODAR [Suspect]
     Active Substance: TEMOZOLOMIDE
     Dosage: 2 OF THE 180 MG CAPSULES/DAILY
     Route: 048
     Dates: end: 20141211

REACTIONS (3)
  - Mental status changes [Unknown]
  - Cerebral ventricle dilatation [Unknown]
  - Neoplasm recurrence [Unknown]
